FAERS Safety Report 9239340 (Version 1)
Quarter: 2013Q2

REPORT INFORMATION
  Report Type: Report from Study
  Country: GB (occurrence: GB)
  Receive Date: 20130418
  Receipt Date: 20130418
  Transmission Date: 20140414
  Serious: Yes (Hospitalization)
  Sender: FDA-Public Use
  Company Number: GB-ROCHE-1212122

PATIENT
  Age: 64 Year
  Sex: Male
  Weight: 87.4 kg

DRUGS (8)
  1. EPIRUBICIN [Suspect]
     Indication: GASTRIC CANCER
     Dosage: MOST RECENT ADMINISTRATION ON 27 DEC 2012, MOST RECENT DOSE: 100 MG
     Route: 042
     Dates: start: 20121114
  2. BEVACIZUMAB [Suspect]
     Indication: GASTRIC CANCER
     Dosage: MOST RECENT ADMINISTRATION ON 27 DEC 2012, MOST RECENT DOSE: 650 MG
     Route: 042
     Dates: start: 20121114
  3. CAPECITABINE [Suspect]
     Indication: GASTRIC CANCER
     Dosage: MOST RECENT ADMINISTRATION ON 27 DEC 2012, MOST RECENT DOSE: 2500 MG DAILY
     Route: 048
     Dates: start: 20121114
  4. CISPLATIN [Suspect]
     Indication: GASTRIC CANCER
     Dosage: MOST RECENT ADMINISTRATION ON 27 DEC 2012, MOST RECENT DOSE: 120 MG
     Route: 042
     Dates: start: 20121114
  5. SIMVASTAT [Concomitant]
     Indication: HYPERLIPIDAEMIA
     Route: 048
  6. RAMIPRIL [Concomitant]
     Indication: HYPERTENSION
     Route: 048
  7. FELODIPINE [Concomitant]
     Indication: HYPERTENSION
     Route: 048
  8. OMEPRAZOLE [Concomitant]
     Route: 048

REACTIONS (3)
  - Thrombocytopenia [Not Recovered/Not Resolved]
  - Renal failure acute [Not Recovered/Not Resolved]
  - Neutropenic sepsis [Recovered/Resolved]
